FAERS Safety Report 9645415 (Version 1)
Quarter: 2013Q4

REPORT INFORMATION
  Report Type: Spontaneous
  Country: GB (occurrence: None)
  Receive Date: 20131023
  Receipt Date: 20131023
  Transmission Date: 20140711
  Serious: Yes (Life-Threatening, Other)
  Sender: FDA-Public Use
  Company Number: AUR-APL-2013-08655

PATIENT
  Age: 65 Year
  Sex: Male
  Weight: 70 kg

DRUGS (6)
  1. BISOPROLOL (BISOPROLOL) [Suspect]
     Indication: PRODUCT USED FOR UNKNOWN INDICATION
     Dates: start: 20121220, end: 20130210
  2. SEROXAT [Suspect]
     Indication: BIPOLAR I DISORDER
     Dosage: 1 DAY
     Dates: start: 2000
  3. ASPIRIN (ACETYLSALICYLIC ACID) [Concomitant]
  4. ISOSORBIDE (ISOSORBIDE) [Concomitant]
  5. SIMVASTATIN (SIMVASTATIN) [Concomitant]
  6. ZOPICLONE (ZOPICLONE) [Concomitant]

REACTIONS (4)
  - Chest discomfort [None]
  - Depression [None]
  - Suicidal ideation [None]
  - Drug interaction [None]
